FAERS Safety Report 8167234-4 (Version None)
Quarter: 2012Q1

REPORT INFORMATION
  Report Type: 
  Country: None (occurrence: None)
  Receive Date: 20120221
  Receipt Date: 20120213
  Transmission Date: 20120608
  Serious: Yes (Hospitalization)
  Sender: FDA-Public Use
  Company Number: 2012MA002072

PATIENT
  Age: 33 Year
  Sex: Male

DRUGS (6)
  1. ACETAMINOPHEN [Concomitant]
  2. MIRTAZAPINE [Suspect]
     Indication: DEPRESSION
     Dosage: 30 MG;QD;PO
     Route: 048
     Dates: start: 20120125, end: 20120201
  3. OMEPRAZOLE [Concomitant]
  4. PENICILLIN [Concomitant]
  5. MULTI-VITAMINS [Concomitant]
  6. MIRTAZAPINE [Suspect]
     Indication: DEPRESSION
     Dosage: 30 MG;QD;PO
     Route: 048
     Dates: start: 20120125, end: 20120201

REACTIONS (9)
  - NERVOUSNESS [None]
  - JAUNDICE [None]
  - TACHYCARDIA [None]
  - SEROTONIN SYNDROME [None]
  - TREMOR [None]
  - DIZZINESS [None]
  - HEPATITIS [None]
  - ALCOHOL WITHDRAWAL SYNDROME [None]
  - HYPERTENSION [None]
